FAERS Safety Report 7929547-8 (Version None)
Quarter: 2011Q4

REPORT INFORMATION
  Report Type: 
  Country: None (occurrence: None)
  Receive Date: 20111121
  Receipt Date: 20111109
  Transmission Date: 20120403
  Serious: Yes (Other)
  Sender: FDA-Public Use
  Company Number: JP-RANBAXY-2011RR-50384

PATIENT
  Sex: Female

DRUGS (2)
  1. MIDAZOLAM [Suspect]
     Indication: SEDATIVE THERAPY
     Dosage: 1 MG, UNK
     Route: 040
  2. MIDAZOLAM [Suspect]
     Indication: PRODUCT USED FOR UNKNOWN INDICATION
     Dosage: 1 MG, UNK
     Route: 040

REACTIONS (1)
  - SEIZURE LIKE PHENOMENA [None]
